FAERS Safety Report 5575535-9 (Version None)
Quarter: 2007Q4

REPORT INFORMATION
  Report Type: 
  Country: None (occurrence: None)
  Receive Date: 20071227
  Receipt Date: 20071220
  Transmission Date: 20080405
  Serious: Yes (Hospitalization, Disabling)
  Sender: FDA-Public Use
  Company Number: US-MERCK-0712USA08429

PATIENT
  Age: 62 Year
  Sex: Male

DRUGS (3)
  1. MEVACOR [Suspect]
     Indication: BLOOD CHOLESTEROL
     Route: 048
     Dates: start: 19971201, end: 20071201
  2. HYDRODIURIL [Concomitant]
     Route: 065
  3. PRINIVIL [Concomitant]
     Route: 065

REACTIONS (2)
  - GALLBLADDER DISORDER [None]
  - MYALGIA [None]
